FAERS Safety Report 23091315 (Version 2)
Quarter: 2025Q2

REPORT INFORMATION
  Report Type: Spontaneous
  Country: JP (occurrence: JP)
  Receive Date: 20231020
  Receipt Date: 20250401
  Transmission Date: 20250717
  Serious: Yes (Other)
  Sender: ALEXION PHARMACEUTICALS
  Company Number: 2023A235128

PATIENT

DRUGS (5)
  1. IMFINZI [Suspect]
     Active Substance: DURVALUMAB
     Dosage: 10 MILLIGRAM/KILOGRAM, Q2W
  2. Species expectorantes [Concomitant]
  3. IMFINZI [Suspect]
     Active Substance: DURVALUMAB
  4. UNSPECIFIED INGREDIENT [Concomitant]
     Active Substance: UNSPECIFIED INGREDIENT
     Indication: Hypertension
     Route: 065
  5. EXPECTORANT [Concomitant]
     Active Substance: GUAIFENESIN
     Route: 065

REACTIONS (4)
  - Malignant neoplasm progression [Unknown]
  - Radiation pneumonitis [Recovering/Resolving]
  - Axillary mass [Unknown]
  - Pneumonia [Unknown]
